FAERS Safety Report 21923660 (Version 4)
Quarter: 2023Q4

REPORT INFORMATION
  Report Type: Spontaneous
  Country: US (occurrence: US)
  Receive Date: 20230130
  Receipt Date: 20231211
  Transmission Date: 20240109
  Serious: No
  Sender: FDA-Public Use
  Company Number: US-SANOFI-01457598

PATIENT
  Age: 34 Year
  Sex: Female
  Weight: 89 kg

DRUGS (1)
  1. DUPIXENT [Suspect]
     Active Substance: DUPILUMAB
     Indication: Eczema
     Dosage: 300 MG, QOW
     Dates: start: 202108

REACTIONS (5)
  - Skin disorder [Unknown]
  - Product dose omission issue [Unknown]
  - Eye disorder [Recovered/Resolved]
  - Eye pruritus [Recovered/Resolved]
  - Product storage error [Unknown]
